FAERS Safety Report 9436808 (Version 1)
Quarter: 2013Q3

REPORT INFORMATION
  Report Type: Spontaneous
  Country: AT (occurrence: AT)
  Receive Date: 20130802
  Receipt Date: 20130802
  Transmission Date: 20140515
  Serious: Yes (Other)
  Sender: FDA-Public Use
  Company Number: AT-RANBAXY-2013RR-71698

PATIENT
  Age: 56 Year
  Sex: Female
  Weight: 58 kg

DRUGS (1)
  1. SERTRALIN INTERPHARM 50MG FILMTABLETTEN [Suspect]
     Indication: DYSTHYMIC DISORDER
     Dosage: 50 MG, QD
     Route: 048
     Dates: start: 20130507, end: 20130628

REACTIONS (3)
  - Anorgasmia [Not Recovered/Not Resolved]
  - Disturbance in sexual arousal [Not Recovered/Not Resolved]
  - Sexual dysfunction [Not Recovered/Not Resolved]
